FAERS Safety Report 16684636 (Version 1)
Quarter: 2019Q3

REPORT INFORMATION
  Report Type: Report from Study
  Country: BR (occurrence: BR)
  Receive Date: 20190808
  Receipt Date: 20190808
  Transmission Date: 20191004
  Serious: Yes (Other)
  Sender: FDA-Public Use
  Company Number: PHHY2019BR182867

PATIENT
  Age: 84 Year
  Sex: Male

DRUGS (4)
  1. PIVAST [Concomitant]
     Indication: BLOOD CHOLESTEROL
     Route: 065
  2. SIMVASTATIN. [Concomitant]
     Active Substance: SIMVASTATIN
     Indication: DIABETES MELLITUS
     Route: 065
  3. JARDIANCE [Concomitant]
     Active Substance: EMPAGLIFLOZIN
     Indication: DIABETES MELLITUS
     Dosage: 25 MG, QD
     Route: 065
  4. ENTRESTO [Suspect]
     Active Substance: SACUBITRIL\VALSARTAN
     Indication: PRODUCT USED FOR UNKNOWN INDICATION
     Dosage: 1 DF (24 MG OF SACUBITRIL AND 26 MG OF VALSARTAN), QD
     Route: 065
     Dates: start: 20190626

REACTIONS (9)
  - Ear haemorrhage [Unknown]
  - Prescribed underdose [Unknown]
  - Head injury [Unknown]
  - Dizziness [Unknown]
  - Renal impairment [Unknown]
  - Infarction [Unknown]
  - Limb injury [Unknown]
  - Malaise [Unknown]
  - Hypotension [Unknown]

NARRATIVE: CASE EVENT DATE: 20190801
